FAERS Safety Report 6054923-0 (Version None)
Quarter: 2009Q1

REPORT INFORMATION
  Report Type: 
  Country: None (occurrence: None)
  Receive Date: 20090128
  Receipt Date: 20090121
  Transmission Date: 20090719
  Serious: Yes (Other)
  Sender: FDA-Public Use
  Company Number: PHHY2009GB02406

PATIENT
  Sex: Female

DRUGS (2)
  1. TEGRETOL [Suspect]
     Indication: NEURALGIA
     Dosage: 800 MG, UNK
     Dates: start: 20080801
  2. TEGRETOL [Suspect]
     Dosage: 600 MG, UNK

REACTIONS (4)
  - BLISTER [None]
  - HEPATIC ENZYME INCREASED [None]
  - ORAL MUCOSAL EXFOLIATION [None]
  - RASH [None]
